FAERS Safety Report 4492561-1 (Version None)
Quarter: 2004Q4

REPORT INFORMATION
  Report Type: 
  Country: None (occurrence: None)
  Receive Date: 20041029
  Receipt Date: 20041021
  Transmission Date: 20050328
  Serious: Yes (Death, Life-Threatening)
  Sender: FDA-Public Use
  Company Number: 2003AP02019

PATIENT
  Age: 63 Year
  Sex: Female

DRUGS (1)
  1. XYLOCAINE [Suspect]
     Indication: ARRHYTHMIA
     Dosage: 1000 MG DAILY IV
     Route: 042
     Dates: start: 20030501, end: 20030501

REACTIONS (4)
  - CARDIO-RESPIRATORY ARREST [None]
  - HYPOXIA [None]
  - MEDICAL DEVICE COMPLICATION [None]
  - MEDICATION ERROR [None]
